FAERS Safety Report 13219888 (Version 1)
Quarter: 2017Q1

REPORT INFORMATION
  Report Type: Spontaneous
  Country: US (occurrence: US)
  Receive Date: 20170210
  Receipt Date: 20170210
  Transmission Date: 20170428
  Serious: Yes (Other)
  Sender: FDA-Public Use
  Company Number: US-ENDO PHARMACEUTICALS INC-2017-000558

PATIENT
  Sex: Female

DRUGS (2)
  1. MS CONTIN [Concomitant]
     Active Substance: MORPHINE SULFATE
     Indication: PAIN
     Dosage: UNK UNK, UNKNOWN
     Route: 065
  2. FENTANYL CITRATE. [Suspect]
     Active Substance: FENTANYL CITRATE
     Indication: BREAKTHROUGH PAIN
     Dosage: UNK UNK, UNKNOWN
     Route: 065

REACTIONS (5)
  - Stevens-Johnson syndrome [Recovered/Resolved]
  - Gastric disorder [Unknown]
  - Off label use [Unknown]
  - Malaise [Unknown]
  - Vomiting [Unknown]
